FAERS Safety Report 7799360-3 (Version None)
Quarter: 2011Q4

REPORT INFORMATION
  Report Type: 
  Country: None (occurrence: None)
  Receive Date: 20111006
  Receipt Date: 20110927
  Transmission Date: 20120403
  Serious: Yes (Other)
  Sender: FDA-Public Use
  Company Number: US-B.I. PHARMACEUTICALS,INC./RIDGEFIELD-2011-DE-05429GD

PATIENT

DRUGS (2)
  1. ACETYLSALICYLIC ACID + DIPYRIDAMOLE [Suspect]
     Indication: THROMBOSIS PROPHYLAXIS
     Dosage: FORMULATION: EXTENDED RELEASE
  2. ASPIRIN [Concomitant]
     Indication: THROMBOSIS PROPHYLAXIS
     Dosage: }/=81 MG

REACTIONS (2)
  - REBOUND EFFECT [None]
  - ISCHAEMIC STROKE [None]
